FAERS Safety Report 4270458-X (Version None)
Quarter: 2004Q1

REPORT INFORMATION
  Report Type: 
  Country: None (occurrence: None)
  Receive Date: 20040113
  Receipt Date: 20040113
  Transmission Date: 20041129
  Serious: Yes (Disabling)
  Sender: FDA-Public Use
  Company Number: None

PATIENT
  Age: 58 Year
  Sex: Female
  Weight: 40.8237 kg

DRUGS (2)
  1. BACTRIM [Suspect]
     Indication: INFECTION
  2. BACTRIM [Suspect]
     Indication: URINARY TRACT INFECTION

REACTIONS (4)
  - ABASIA [None]
  - ARTHRITIS [None]
  - DIFFICULTY IN WALKING [None]
  - JOINT SWELLING [None]
